FAERS Safety Report 5673082-7 (Version None)
Quarter: 2008Q1

REPORT INFORMATION
  Report Type: 
  Country: None (occurrence: None)
  Receive Date: 20080319
  Receipt Date: 20080122
  Transmission Date: 20080703
  Serious: No
  Sender: FDA-Public Use
  Company Number: US-ASTRAZENECA-2008UW01591

PATIENT
  Age: 40 Year
  Sex: Female

DRUGS (2)
  1. SYMBICORT [Suspect]
     Dosage: 80/4.5 UG HS
     Route: 055
  2. SYMBICORT [Suspect]
     Dosage: 80/4.5 UG QAM
     Route: 055

REACTIONS (1)
  - NON-CARDIAC CHEST PAIN [None]
